FAERS Safety Report 9247796 (Version 5)
Quarter: 2013Q4

REPORT INFORMATION
  Report Type: Report from Study
  Country: US (occurrence: US)
  Receive Date: 20130423
  Receipt Date: 20131127
  Transmission Date: 20140711
  Serious: No
  Sender: FDA-Public Use
  Company Number: US-VERTEX PHARMACEUTICALS INC.-2013-005225

PATIENT
  Age: 55 Year
  Sex: Female
  Weight: 81 kg

DRUGS (6)
  1. VX-950 (TELAPREVIR) [Suspect]
     Indication: HEPATITIS C
     Dosage: 750 MG, TID
     Route: 048
     Dates: start: 20130405, end: 20130414
  2. VX-950 (TELAPREVIR) [Suspect]
     Dosage: 750 MG, TID
     Route: 048
     Dates: start: 20131108, end: 20131111
  3. RIBAVIRIN [Suspect]
     Indication: HEPATITIS C
     Dosage: 600 MG, BID
     Route: 048
     Dates: start: 20130405, end: 20130414
  4. RIBAVIRIN [Suspect]
     Dosage: 3 DF, BID
     Dates: start: 20131108, end: 20131111
  5. PEGASYS [Suspect]
     Indication: HEPATITIS C
     Dosage: UNK, QW
     Route: 058
     Dates: start: 20130405, end: 20130414
  6. PEGASYS [Suspect]
     Dosage: UNK
     Dates: start: 20131108, end: 20131111

REACTIONS (5)
  - Tremor [Unknown]
  - Impaired work ability [Unknown]
  - Feeling abnormal [Recovered/Resolved]
  - Decreased appetite [Recovered/Resolved]
  - Nausea [Unknown]
